FAERS Safety Report 6931262-4 (Version None)
Quarter: 2010Q3

REPORT INFORMATION
  Report Type: 
  Country: None (occurrence: None)
  Receive Date: 20100816
  Receipt Date: 20100809
  Transmission Date: 20110219
  Serious: Yes (Life-Threatening)
  Sender: FDA-Public Use
  Company Number: 2010SP021037

PATIENT
  Age: 70 Year
  Sex: Male

DRUGS (10)
  1. REFLEX (MIRTAZAPINE /01293201/) [Suspect]
     Indication: DEPRESSION
     Dosage: 15 MG;QD;PO; 30 MG;QD;PO; 45 MG;QD;PO
     Route: 048
     Dates: start: 20100215, end: 20100221
  2. REFLEX (MIRTAZAPINE /01293201/) [Suspect]
     Indication: DEPRESSION
     Dosage: 15 MG;QD;PO; 30 MG;QD;PO; 45 MG;QD;PO
     Route: 048
     Dates: start: 20100222, end: 20100223
  3. REFLEX (MIRTAZAPINE /01293201/) [Suspect]
     Indication: DEPRESSION
     Dosage: 15 MG;QD;PO; 30 MG;QD;PO; 45 MG;QD;PO
     Route: 048
     Dates: start: 20100224, end: 20100309
  4. PAROXETINE HYDROCHLORIDE [Concomitant]
  5. TETRAMIDE [Concomitant]
  6. CLOMIPRAMINE HYDROCHLORIDE [Concomitant]
  7. MIANSERIN HYDROCHLORIDE [Concomitant]
  8. SULPIRIDE [Concomitant]
  9. QUETIAPINE FUMARATE [Concomitant]
  10. ARIPIPRAZOLE [Concomitant]

REACTIONS (14)
  - ARTERIAL HAEMORRHAGE [None]
  - CARDIO-RESPIRATORY ARREST [None]
  - CARTILAGE INJURY [None]
  - COMPLETED SUICIDE [None]
  - DEMENTIA [None]
  - EMOTIONAL DISTRESS [None]
  - FACE INJURY [None]
  - FACIAL BONES FRACTURE [None]
  - INSOMNIA [None]
  - LIVER INJURY [None]
  - PNEUMOTHORAX [None]
  - RIB FRACTURE [None]
  - THERAPEUTIC PRODUCT INEFFECTIVE [None]
  - TRAUMATIC LUNG INJURY [None]
